FAERS Safety Report 5043310-X (Version None)
Quarter: 2006Q3

REPORT INFORMATION
  Report Type: 
  Country: None (occurrence: None)
  Receive Date: 20060703
  Receipt Date: 20060703
  Transmission Date: 20061208
  Serious: No
  Sender: FDA-Public Use
  Company Number: None

PATIENT
  Age: 70 Year
  Sex: Female
  Weight: 56.6996 kg

DRUGS (1)
  1. LEVAQUIN [Suspect]
     Indication: SINUSITIS
     Dosage: ONE TABLET EACH DAY
     Dates: start: 20060620, end: 20060624

REACTIONS (4)
  - CONTUSION [None]
  - PAIN IN EXTREMITY [None]
  - TENDON DISORDER [None]
  - TENDON RUPTURE [None]
